FAERS Safety Report 15135208 (Version 1)
Quarter: 2018Q3

REPORT INFORMATION
  Report Type: Spontaneous
  Country: IT (occurrence: IT)
  Receive Date: 20180712
  Receipt Date: 20180712
  Transmission Date: 20181010
  Serious: Yes (Hospitalization)
  Sender: FDA-Public Use
  Company Number: IT-CELGENEUS-ITA-20180700567

PATIENT
  Age: 78 Year
  Sex: Male
  Weight: 85 kg

DRUGS (4)
  1. LANSOPRAZOLE. [Concomitant]
     Active Substance: LANSOPRAZOLE
     Indication: PROPHYLAXIS AGAINST GASTROINTESTINAL ULCER
     Route: 048
     Dates: start: 20150101, end: 20170324
  2. REVLIMID [Suspect]
     Active Substance: LENALIDOMIDE
     Indication: PLASMA CELL MYELOMA
     Dosage: 15 MILLIGRAM
     Route: 048
     Dates: start: 20170213, end: 20170322
  3. LEVOTHYROXINE SODIUM. [Concomitant]
     Active Substance: LEVOTHYROXINE SODIUM
     Indication: HYPOTHYROIDISM
     Route: 048
     Dates: start: 20100101, end: 20170324
  4. BACTRIM 160 MG + 800 MG TABLETS [Concomitant]
     Indication: ANTIBIOTIC PROPHYLAXIS
     Dosage: 2 TABLET
     Route: 048
     Dates: start: 20170320, end: 20170322

REACTIONS (5)
  - Pyrexia [Recovering/Resolving]
  - Arthralgia [Recovering/Resolving]
  - Erythema [Recovering/Resolving]
  - Tubulointerstitial nephritis [Recovering/Resolving]
  - Acute kidney injury [Recovering/Resolving]

NARRATIVE: CASE EVENT DATE: 20170322
